FAERS Safety Report 4737360-8 (Version None)
Quarter: 2005Q3

REPORT INFORMATION
  Report Type: 
  Country: None (occurrence: None)
  Receive Date: 20050809
  Receipt Date: 20050706
  Transmission Date: 20060218
  Serious: Yes (Hospitalization)
  Sender: FDA-Public Use
  Company Number: ES-BOEHRINGER INGELHEIM PHARMACEUTICALS, INC.-2005-ES-00205ES

PATIENT
  Sex: Male
  Weight: 59 kg

DRUGS (3)
  1. TIPRANAVIR + RITONAVIR CO-ADMIN [Suspect]
     Indication: HIV INFECTION
     Dosage: TIPRANAVIR 1000MG + RITONAVIR 400MG
     Route: 048
     Dates: start: 20050226
  2. TENOFOVIR [Concomitant]
     Indication: HIV INFECTION
     Route: 048
     Dates: start: 20050226
  3. COMBIVIR [Concomitant]
     Indication: HIV INFECTION
     Dosage: ZIDOVUDINE 600MG + LAMIVUDINE 300MG
     Route: 048
     Dates: start: 20050226

REACTIONS (1)
  - PNEUMONIA PNEUMOCOCCAL [None]
